FAERS Safety Report 5102676-2 (Version None)
Quarter: 2006Q3

REPORT INFORMATION
  Report Type: 
  Country: None (occurrence: None)
  Receive Date: 20060912
  Receipt Date: 20060810
  Transmission Date: 20061208
  Serious: Yes (Other)
  Sender: FDA-Public Use
  Company Number: JP-BRISTOL-MYERS SQUIBB COMPANY-13478268

PATIENT
  Age: 52 Year
  Sex: Male

DRUGS (12)
  1. ARIPIPRAZOLE [Suspect]
     Indication: SCHIZOPHRENIA, PARANOID TYPE
     Route: 048
     Dates: start: 20060706, end: 20060803
  2. RISPERIDONE [Concomitant]
     Indication: SCHIZOPHRENIA, PARANOID TYPE
     Route: 048
     Dates: start: 20050227, end: 20060725
  3. RISPERIDONE [Concomitant]
     Route: 048
     Dates: start: 20060703, end: 20060710
  4. RISPERIDONE [Concomitant]
     Route: 048
     Dates: start: 20060626, end: 20060702
  5. BROMAZEPAM [Concomitant]
     Indication: ANXIETY
     Route: 048
     Dates: start: 20040428
  6. PROPRANOLOL HYDROCHLORIDE [Concomitant]
     Indication: TREMOR
     Route: 048
     Dates: start: 20040428
  7. FLUNITRAZEPAM [Concomitant]
     Indication: INSOMNIA
     Route: 048
     Dates: start: 20040428
  8. TRAZODONE HCL [Concomitant]
     Route: 048
     Dates: start: 20040428
  9. NIFEDIPINE [Concomitant]
     Indication: HYPERTENSION
     Dates: start: 20040428
  10. REBAMIPIDE [Concomitant]
     Indication: GASTRITIS
     Route: 048
     Dates: start: 20040428
  11. TAMSULOSIN HCL [Concomitant]
     Indication: DYSURIA
     Route: 048
     Dates: start: 20040428
  12. IMIDAPRIL HCL [Concomitant]
     Indication: HYPERTENSION
     Route: 048
     Dates: start: 20040428

REACTIONS (1)
  - PSYCHIATRIC SYMPTOM [None]
